FAERS Safety Report 8571892-X (Version None)
Quarter: 2012Q3

REPORT INFORMATION
  Report Type: 
  Country: None (occurrence: None)
  Receive Date: 20120724
  Receipt Date: 20120712
  Transmission Date: 20120928
  Serious: Yes (Hospitalization)
  Sender: FDA-Public Use
  Company Number: 2012ST000549

PATIENT
  Age: 77 Year
  Sex: Female
  Weight: 63.05 kg

DRUGS (5)
  1. MATULANE [Suspect]
     Indication: NON-HODGKIN'S LYMPHOMA
     Dosage: 100 MG;QD;PO
     Route: 048
     Dates: start: 20120521
  2. RITUXIMAB [Suspect]
     Indication: NON-HODGKIN'S LYMPHOMA
     Dates: start: 20120501
  3. SODIUM NITROPRUSSIDE [Suspect]
     Indication: NON-HODGKIN'S LYMPHOMA
     Dates: start: 20120501
  4. CYCLOPHOSPHAMIDE [Suspect]
     Indication: NON-HODGKIN'S LYMPHOMA
     Dosage: IV
     Route: 042
     Dates: start: 20120501
  5. PREDNISONE TAB [Suspect]
     Indication: NON-HODGKIN'S LYMPHOMA
     Dosage: PO
     Dates: start: 20120501

REACTIONS (10)
  - DYSGEUSIA [None]
  - NEUTROPENIA [None]
  - DYSPNOEA [None]
  - BRONCHIAL DISORDER [None]
  - ASTHENIA [None]
  - CARDIAC FAILURE CONGESTIVE [None]
  - THROMBOCYTOPENIA [None]
  - WEIGHT FLUCTUATION [None]
  - PLEURAL EFFUSION [None]
  - FATIGUE [None]
